FAERS Safety Report 18649135 (Version 1)
Quarter: 2020Q4

REPORT INFORMATION
  Report Type: Spontaneous
  Country: US (occurrence: US)
  Receive Date: 20201222
  Receipt Date: 20201222
  Transmission Date: 20210114
  Serious: Yes (Hospitalization, Other)
  Sender: FDA-Public Use
  Company Number: US-DOVA PHARMACEUTICALS INC.-DOV-000774

PATIENT
  Age: 25 Year
  Sex: Female

DRUGS (2)
  1. DOPTELET [Suspect]
     Active Substance: AVATROMBOPAG MALEATE
     Indication: IMMUNE THROMBOCYTOPENIA
     Route: 048
  2. FOSTAMATINIB [Suspect]
     Active Substance: FOSTAMATINIB
     Indication: PRODUCT USED FOR UNKNOWN INDICATION

REACTIONS (6)
  - Vision blurred [Unknown]
  - Headache [Unknown]
  - Superior sagittal sinus thrombosis [Unknown]
  - SARS-CoV-2 test positive [Recovered/Resolved]
  - Paraesthesia [Unknown]
  - Transverse sinus thrombosis [Unknown]

NARRATIVE: CASE EVENT DATE: 2020
